FAERS Safety Report 20784359 (Version 2)
Quarter: 2022Q3

REPORT INFORMATION
  Report Type: Report from Study
  Country: CA (occurrence: CA)
  Receive Date: 20220504
  Receipt Date: 20220712
  Transmission Date: 20221027
  Serious: Yes (Other)
  Sender: FDA-Public Use
  Company Number: CA-GLAXOSMITHKLINE-CA2022071850

PATIENT

DRUGS (2)
  1. MEPOLIZUMAB [Suspect]
     Active Substance: MEPOLIZUMAB
     Indication: Asthma
     Dosage: 100 MG, Z:EVERY 4 WEEKS
     Route: 058
     Dates: start: 20211112
  2. COVID 19 VACCINE BOOSTER [Concomitant]
     Indication: COVID-19 prophylaxis
     Dosage: UNK, 5 TH DOSE

REACTIONS (3)
  - Cardiac failure congestive [Unknown]
  - Chronic obstructive pulmonary disease [Unknown]
  - Increased bronchial secretion [Unknown]
